FAERS Safety Report 8763329 (Version 2)
Quarter: 2012Q4

REPORT INFORMATION
  Report Type: 
  Country: US (occurrence: US)
  Receive Date: 20120830
  Receipt Date: 20120924
  Transmission Date: 20130627
  Serious: No
  Sender: FDA-Public Use
  Company Number: US-PFIZER INC-2012212939

PATIENT
  Age: 65 Year
  Sex: Female
  Weight: 113 kg

DRUGS (2)
  1. CHANTIX [Suspect]
     Indication: SMOKING CESSATION THERAPY
     Dosage: UNK
     Dates: start: 2012, end: 2012
  2. BYSTOLIC [Concomitant]
     Indication: BLOOD PRESSURE ABNORMAL
     Dosage: 10 mg, daily

REACTIONS (1)
  - Anxiety [Recovered/Resolved]
